FAERS Safety Report 25340171 (Version 1)
Quarter: 2025Q2

REPORT INFORMATION
  Report Type: Report from Study
  Country: DE (occurrence: DE)
  Receive Date: 20250521
  Receipt Date: 20250521
  Transmission Date: 20250717
  Serious: Yes (Hospitalization)
  Sender: ROCHE
  Company Number: DE-ROCHE-10000283437

PATIENT
  Age: 80 Year
  Sex: Male
  Weight: 79 kg

DRUGS (2)
  1. ATEZOLIZUMAB [Suspect]
     Active Substance: ATEZOLIZUMAB
     Indication: Hepatocellular carcinoma
     Dosage: DATE OF LAST DOSE (1200 MG) PRIOR TO EVENT: 23-MAR-2025
     Route: 065
     Dates: start: 20241009
  2. AVASTIN [Suspect]
     Active Substance: BEVACIZUMAB
     Indication: Hepatocellular carcinoma
     Dosage: DATE OF LAST DOSE (1185 MG) PRIOR TO EVENT: 23-MAR-2025
     Route: 065

REACTIONS (3)
  - Portal hypertensive gastropathy [Recovered/Resolved]
  - Thrombocytopenia [Recovered/Resolved]
  - Hypersplenism [Recovered/Resolved]

NARRATIVE: CASE EVENT DATE: 20250410
